FAERS Safety Report 13822064 (Version 1)
Quarter: 2017Q3

REPORT INFORMATION
  Report Type: Spontaneous
  Country: US (occurrence: US)
  Receive Date: 20170801
  Receipt Date: 20170801
  Transmission Date: 20171127
  Serious: Yes (Hospitalization, Other)
  Sender: FDA-Public Use
  Company Number: US-MYLANLABS-2017M1046660

PATIENT

DRUGS (1)
  1. GLYCERYL TRINITRATE [Suspect]
     Active Substance: NITROGLYCERIN
     Indication: PRODUCT USED FOR UNKNOWN INDICATION
     Route: 060

REACTIONS (2)
  - Unmasking of previously unidentified disease [Recovered/Resolved]
  - Phaeochromocytoma [Recovered/Resolved]
